FAERS Safety Report 15933089 (Version 2)
Quarter: 2019Q1

REPORT INFORMATION
  Report Type: Spontaneous
  Country: US (occurrence: US)
  Receive Date: 20190207
  Receipt Date: 20190207
  Transmission Date: 20190417
  Serious: No
  Sender: FDA-Public Use
  Company Number: US-KYOWAKIRIN-2018BKK011147

PATIENT

DRUGS (2)
  1. CRYSVITA [Suspect]
     Active Substance: BUROSUMAB-TWZA
     Indication: PRODUCT USED FOR UNKNOWN INDICATION
     Dosage: 30 MG (50 MG (0.8 MG/KG) TOTAL WITH INJECTIONS OF 20 AND 30 MG), 1X/2 WEEKS
     Route: 058
     Dates: start: 20181001
  2. CRYSVITA [Suspect]
     Active Substance: BUROSUMAB-TWZA
     Indication: PRODUCT USED FOR UNKNOWN INDICATION
     Dosage: 20 MG (50 MG (0.8 MG/KG) TOTAL WITH INJECTIONS OF 20 AND 30 MG), 1X/2 WEEKS
     Route: 058
     Dates: start: 20181001

REACTIONS (3)
  - Injection site urticaria [Recovered/Resolved]
  - Malaise [Unknown]
  - Injection site pain [Recovered/Resolved]

NARRATIVE: CASE EVENT DATE: 20181126
